FAERS Safety Report 20144218 (Version 2)
Quarter: 2024Q3

REPORT INFORMATION
  Report Type: Spontaneous
  Country: ES (occurrence: ES)
  Receive Date: 20211203
  Receipt Date: 20240806
  Transmission Date: 20241017
  Serious: Yes (Other)
  Sender: ROCHE
  Company Number: ES-SEATTLE GENETICS-2021SGN05804

PATIENT
  Sex: Female

DRUGS (5)
  1. TRASTUZUMAB [Suspect]
     Active Substance: TRASTUZUMAB
     Indication: Breast cancer metastatic
     Route: 065
  2. CAPECITABINE [Suspect]
     Active Substance: CAPECITABINE
     Indication: Breast cancer metastatic
     Route: 065
  3. TUKYSA [Suspect]
     Active Substance: TUCATINIB
     Indication: Breast cancer metastatic
     Dosage: 300 MG, BID
     Route: 065
     Dates: start: 202109
  4. TUKYSA [Suspect]
     Active Substance: TUCATINIB
     Route: 065
  5. TUKYSA [Suspect]
     Active Substance: TUCATINIB
     Dosage: 250 MG BID
     Route: 065

REACTIONS (3)
  - Transaminases increased [Recovering/Resolving]
  - Diarrhoea [Recovering/Resolving]
  - Metastases to central nervous system [Unknown]
